FAERS Safety Report 19605792 (Version 3)
Quarter: 2021Q3

REPORT INFORMATION
  Report Type: Report from Study
  Country: US (occurrence: US)
  Receive Date: 20210723
  Receipt Date: 20210816
  Transmission Date: 20211014
  Serious: No
  Sender: FDA-Public Use
  Company Number: NVSC2021US146682

PATIENT
  Age: 40 Year
  Sex: Female

DRUGS (1)
  1. KESIMPTA [Suspect]
     Active Substance: OFATUMUMAB
     Indication: MULTIPLE SCLEROSIS
     Dosage: 20 MG, QW
     Route: 058
     Dates: start: 20210626

REACTIONS (9)
  - Anxiety [Recovering/Resolving]
  - Pain of skin [Recovered/Resolved]
  - Inappropriate schedule of product administration [Unknown]
  - Vision blurred [Recovered/Resolved]
  - Urinary incontinence [Recovered/Resolved]
  - Hyperaesthesia [Recovered/Resolved]
  - Visual impairment [Recovered/Resolved]
  - Injection site haemorrhage [Recovered/Resolved]
  - Headache [Recovered/Resolved]

NARRATIVE: CASE EVENT DATE: 20210626
